FAERS Safety Report 23189376 (Version 1)
Quarter: 2023Q4

REPORT INFORMATION
  Report Type: Report from Study
  Country: US (occurrence: US)
  Receive Date: 20231116
  Receipt Date: 20231116
  Transmission Date: 20240109
  Serious: No
  Sender: FDA-Public Use
  Company Number: US-ACADIA PHARMACEUTICALS INC.-ACA-2023-TRF-004857

PATIENT
  Sex: Female

DRUGS (8)
  1. DAYBUE [Suspect]
     Active Substance: TROFINETIDE
     Dosage: 25 MILLILITER
  2. DAYBUE [Suspect]
     Active Substance: TROFINETIDE
     Dosage: WENT UP 5ML EVERY WEEK
  3. DAYBUE [Suspect]
     Active Substance: TROFINETIDE
     Dosage: 35 MILLILITER
     Route: 065
  4. DAYBUE [Suspect]
     Active Substance: TROFINETIDE
     Dosage: GOING UP 1 ML EVERY THREE DAYS
     Route: 065
  5. DAYBUE [Suspect]
     Active Substance: TROFINETIDE
     Dosage: 37 MILLILITER
     Route: 065
  6. DAYBUE [Suspect]
     Active Substance: TROFINETIDE
     Dosage: 35 MILLILITER
     Route: 065
  7. DAYBUE [Suspect]
     Active Substance: TROFINETIDE
     Dosage: 36 MILLILITER
     Route: 065
  8. DAYBUE [Suspect]
     Active Substance: TROFINETIDE
     Dosage: 37 MILLILITER
     Route: 065

REACTIONS (2)
  - Underdose [Not Recovered/Not Resolved]
  - Diarrhoea [Recovering/Resolving]
